FAERS Safety Report 5004814-9 (Version None)
Quarter: 2006Q1

REPORT INFORMATION
  Report Type: 
  Country: None (occurrence: None)
  Receive Date: 20060321
  Receipt Date: 20051215
  Transmission Date: 20060701
  Serious: No
  Sender: FDA-Public Use
  Company Number: YPA20060004

PATIENT
  Age: 79 Year
  Sex: Female
  Weight: 72.7 kg

DRUGS (9)
  1. VESICARE [Suspect]
     Indication: HYPERTONIC BLADDER
     Dosage: 5 MG, UID/QD,ORAL
     Route: 048
     Dates: start: 20051210
  2. NEXIUM [Concomitant]
  3. MONOPRIL (FOSINORPIL SODIUM) [Concomitant]
  4. PLAVIX [Concomitant]
  5. GENERIC LITHIUM (CHLORDIAZEPOXIDE HYDROCHLORIDE) [Concomitant]
  6. INDAPAMIDE [Concomitant]
  7. ASPIRIN [Concomitant]
  8. MULTIVITAMINS (ERGOCALCIFEROL, ASCORBIC ACID, FOLIC ACID, THIAMINE HYD [Concomitant]
  9. FISH OIL (FISH OIL) [Concomitant]

REACTIONS (3)
  - ABDOMINAL DISTENSION [None]
  - DRUG INEFFECTIVE [None]
  - URINE FLOW DECREASED [None]
